FAERS Safety Report 23997934 (Version 3)
Quarter: 2025Q3

REPORT INFORMATION
  Report Type: Report from Study
  Country: AR (occurrence: AR)
  Receive Date: 20240621
  Receipt Date: 20250830
  Transmission Date: 20251021
  Serious: Yes (Other)
  Sender: NOVARTIS
  Company Number: AR-002147023-NVSC2024AR055076

PATIENT
  Age: 39 Year
  Sex: Female

DRUGS (1)
  1. COSENTYX [Suspect]
     Active Substance: SECUKINUMAB
     Indication: Axial spondyloarthritis
     Dosage: 150 MG, QMO
     Route: 058
     Dates: start: 20220930

REACTIONS (16)
  - Thrombosis [Unknown]
  - Haemorrhoids [Unknown]
  - Haemorrhoidal haemorrhage [Unknown]
  - Depression [Unknown]
  - Malaise [Unknown]
  - Pain in extremity [Unknown]
  - Sacral pain [Unknown]
  - Haemorrhage [Unknown]
  - Inflammation [Unknown]
  - Arthralgia [Unknown]
  - Axial spondyloarthritis [Unknown]
  - Condition aggravated [Unknown]
  - Gait inability [Unknown]
  - Pain [Unknown]
  - Swelling [Unknown]
  - Visual impairment [Unknown]

NARRATIVE: CASE EVENT DATE: 20240501
